FAERS Safety Report 6171949-7 (Version None)
Quarter: 2009Q2

REPORT INFORMATION
  Report Type: 
  Country: None (occurrence: None)
  Receive Date: 20090429
  Receipt Date: 20090420
  Transmission Date: 20091009
  Serious: Yes (Other)
  Sender: FDA-Public Use
  Company Number: PHHY2009JP14954

PATIENT
  Age: 1 Year
  Sex: Female
  Weight: 9.5 kg

DRUGS (6)
  1. CYCLOSPORINE [Suspect]
     Indication: JUVENILE ARTHRITIS
     Dosage: 10 MG/DAY
     Route: 042
  2. CYCLOSPORINE [Suspect]
     Dosage: 10-14 MG/DAY
     Route: 042
  3. METHYLPREDNISOLONE 4MG TAB [Suspect]
     Indication: RASH
     Dosage: 300 MG/DAY ? 3 DAYS/WEEK
  4. METHYLPREDNISOLONE 4MG TAB [Suspect]
     Dosage: 100-200 MG/DAY ? 5 DAYS
  5. DEXAMETHASONE 4MG TAB [Concomitant]
     Dosage: 4 MG/DAY
     Route: 042
  6. IBUPROFEN [Concomitant]

REACTIONS (7)
  - ALTERED STATE OF CONSCIOUSNESS [None]
  - CLONIC CONVULSION [None]
  - CYTOMEGALOVIRUS INFECTION [None]
  - HEPATIC FUNCTION ABNORMAL [None]
  - HISTIOCYTOSIS HAEMATOPHAGIC [None]
  - PANCYTOPENIA [None]
  - PYREXIA [None]
